FAERS Safety Report 16866132 (Version 1)
Quarter: 2019Q3

REPORT INFORMATION
  Report Type: Spontaneous
  Country: US (occurrence: US)
  Receive Date: 20190930
  Receipt Date: 20190930
  Transmission Date: 20191005
  Serious: No
  Sender: FDA-Public Use
  Company Number: US-ALLERGAN-1927055US

PATIENT
  Sex: Female

DRUGS (2)
  1. PROZAC/DULOXETINE [Concomitant]
     Indication: DEPRESSION
     Dosage: 40 MG, QOD
     Route: 048
     Dates: start: 1999, end: 20190613
  2. VRAYLAR [Suspect]
     Active Substance: CARIPRAZINE
     Indication: DEPRESSION
     Dosage: 1.5 MG, QD
     Route: 048
     Dates: start: 201906, end: 201906

REACTIONS (1)
  - Drug ineffective [Unknown]
